FAERS Safety Report 18953458 (Version 1)
Quarter: 2021Q1

REPORT INFORMATION
  Report Type: Spontaneous
  Country: US (occurrence: US)
  Receive Date: 20210228
  Receipt Date: 20210228
  Transmission Date: 20210420
  Serious: Yes (Hospitalization)
  Sender: FDA-Public Use
  Company Number: None

PATIENT
  Age: 51 Year
  Sex: Male

DRUGS (1)
  1. SULFAMETHOXAZOLE/TRIMETHOPRIM (SULFAMETHIZOLE 800MG/TRIMETHOPRIM 160MG T [Suspect]
     Active Substance: SULFAMETHOXAZOLE\TRIMETHOPRIM
     Indication: FURUNCLE
     Route: 048
     Dates: start: 20201117, end: 20201120

REACTIONS (5)
  - Anaphylactic reaction [None]
  - Speech disorder [None]
  - Dyspnoea [None]
  - Swelling [None]
  - Erythema multiforme [None]

NARRATIVE: CASE EVENT DATE: 20201119
